FAERS Safety Report 10904706 (Version 1)
Quarter: 2015Q1

REPORT INFORMATION
  Report Type: Spontaneous
  Country: US (occurrence: None)
  Receive Date: 20150309
  Receipt Date: 20150309
  Transmission Date: 20150721
  Serious: Yes (Death, Life-Threatening, Hospitalization)
  Sender: FDA-Public Use
  Company Number: None

PATIENT
  Age: 25 Year
  Sex: Male
  Weight: 73 kg

DRUGS (1)
  1. NUVIGIL [Suspect]
     Active Substance: ARMODAFINIL
     Indication: SOMNOLENCE
     Dosage: SAMPLES
     Dates: start: 20150209, end: 20150218

REACTIONS (14)
  - Eye pruritus [None]
  - Mouth swelling [None]
  - Acute kidney injury [None]
  - Septic shock [None]
  - Aspiration [None]
  - Atrial fibrillation [None]
  - Stomatitis [None]
  - Dyspnoea [None]
  - Pyrexia [None]
  - Rash [None]
  - Hypoxia [None]
  - Hypotension [None]
  - Acidosis [None]
  - Toxic epidermal necrolysis [None]

NARRATIVE: CASE EVENT DATE: 20150218
